FAERS Safety Report 5633852-8 (Version None)
Quarter: 2008Q1

REPORT INFORMATION
  Report Type: 
  Country: None (occurrence: None)
  Receive Date: 20080219
  Receipt Date: 20080204
  Transmission Date: 20080703
  Serious: Yes (Hospitalization)
  Sender: FDA-Public Use
  Company Number: ADE2008-0122

PATIENT
  Age: 50 Year
  Sex: Male
  Weight: 113 kg

DRUGS (5)
  1. SIMVASTATIN [Suspect]
     Indication: HYPERCHOLESTEROLAEMIA
     Dosage: 40MG - DAILY - PO
     Route: 048
     Dates: start: 20070814, end: 20071002
  2. CITALOPRAM HYDROBROMIDE [Concomitant]
  3. ISOSORBIDE MONONITRATE [Concomitant]
  4. METOPROLOL TARTRATE [Concomitant]
  5. NICORANDIL [Concomitant]

REACTIONS (3)
  - ANKLE FRACTURE [None]
  - FALL [None]
  - TIBIA FRACTURE [None]
